FAERS Safety Report 10246425 (Version 3)
Quarter: 2014Q3

REPORT INFORMATION
  Report Type: Spontaneous
  Country: US (occurrence: US)
  Receive Date: 20140619
  Receipt Date: 20140714
  Transmission Date: 20150326
  Serious: No
  Sender: FDA-Public Use
  Company Number: US-PFIZER INC-2014166058

PATIENT
  Age: 69 Year
  Sex: Female
  Weight: 47.6 kg

DRUGS (4)
  1. XALATAN [Suspect]
     Active Substance: LATANOPROST
     Dosage: UNK
  2. XALATAN [Suspect]
     Active Substance: LATANOPROST
     Indication: GLAUCOMA
     Dosage: 1 GTT, 1X/DAY
     Route: 047
     Dates: start: 2004, end: 201406
  3. CALCITONIN, SALMON [Concomitant]
     Dosage: UNK
  4. XALATAN [Suspect]
     Active Substance: LATANOPROST
     Dosage: 1 GTT, OU QHS (1 DROP IN BOTH EYES EVERY EVENING)
     Route: 061
     Dates: start: 20090604, end: 20140617

REACTIONS (10)
  - Headache [Recovered/Resolved]
  - Nausea [Recovered/Resolved]
  - Muscular weakness [Unknown]
  - Hypoglycaemia [Unknown]
  - Product quality issue [Unknown]
  - Fatigue [Recovered/Resolved]
  - Nervousness [Unknown]
  - Dizziness [Recovered/Resolved]
  - Eye pain [Recovered/Resolved]
  - Feeling abnormal [Unknown]

NARRATIVE: CASE EVENT DATE: 20140512
